FAERS Safety Report 16474135 (Version 1)
Quarter: 2019Q2

REPORT INFORMATION
  Report Type: Spontaneous
  Country: US (occurrence: US)
  Receive Date: 20190625
  Receipt Date: 20190625
  Transmission Date: 20190711
  Serious: No
  Sender: FDA-Public Use
  Company Number: US-PFIZER INC-2019263881

PATIENT
  Age: 68 Year
  Sex: Male
  Weight: 99.79 kg

DRUGS (1)
  1. LYRICA CR [Suspect]
     Active Substance: PREGABALIN
     Indication: NEUROPATHY PERIPHERAL
     Dosage: 165 MG, 1X/DAY
     Route: 048
     Dates: start: 201905, end: 201905

REACTIONS (5)
  - Gait disturbance [Unknown]
  - Head discomfort [Unknown]
  - Drug intolerance [Unknown]
  - Dizziness [Unknown]
  - Feeling abnormal [Unknown]

NARRATIVE: CASE EVENT DATE: 201905
